FAERS Safety Report 5896590-2 (Version None)
Quarter: 2008Q3

REPORT INFORMATION
  Report Type: 
  Country: None (occurrence: None)
  Receive Date: 20080924
  Receipt Date: 20080916
  Transmission Date: 20090109
  Serious: Yes (Death, Life-Threatening, Hospitalization)
  Sender: FDA-Public Use
  Company Number: JP-PFIZER INC-2008076743

PATIENT
  Age: 65 Year
  Sex: Male

DRUGS (9)
  1. NORVASC [Suspect]
     Route: 048
  2. NIFEKALANT HYDROCHLORIDE [Suspect]
     Route: 042
  3. XYLOCAINE [Suspect]
  4. CIPROFLOXACIN HCL [Suspect]
     Route: 042
  5. ELASPOL [Suspect]
     Route: 042
  6. ASPIRIN [Suspect]
     Route: 048
  7. LANSOPRAZOLE [Suspect]
     Route: 048
  8. CALBLOCK [Suspect]
     Route: 048
  9. SOLU-MEDROL [Concomitant]
     Dosage: DAILY DOSE:1GRAM
     Route: 042

REACTIONS (2)
  - CARDIAC FAILURE [None]
  - TOXIC EPIDERMAL NECROLYSIS [None]
